FAERS Safety Report 19493231 (Version 1)
Quarter: 2021Q3

REPORT INFORMATION
  Report Type: Spontaneous
  Country: DE (occurrence: DE)
  Receive Date: 20210705
  Receipt Date: 20210705
  Transmission Date: 20211014
  Serious: Yes (Hospitalization)
  Sender: FDA-Public Use
  Company Number: DE-PFIZER INC-2021770562

PATIENT
  Age: 51 Year
  Sex: Male
  Weight: 95 kg

DRUGS (9)
  1. CANDESARTAN. [Concomitant]
     Active Substance: CANDESARTAN
     Dosage: 8 MG, 1X/DAY, TABLET
     Route: 048
  2. KALIUMCITRAT [Concomitant]
     Active Substance: POTASSIUM CITRATE
     Dosage: 2157.3 MG, 1X/DAY
     Route: 048
  3. PANTOPRAZOL [PANTOPRAZOLE] [Concomitant]
     Active Substance: PANTOPRAZOLE
     Dosage: 40 MG, 1X/DAY
     Route: 048
  4. FERRO SANOL COMP [CYANOCOBALAMIN;FERROUS GLYCINE SULFATE;FOLIC ACID] [Concomitant]
     Dosage: 30MG/0.5MG/2.5UG CAPSULE 1X/DAY
     Route: 048
  5. HYDROCHLOROTHIAZID [Suspect]
     Active Substance: HYDROCHLOROTHIAZIDE
     Dosage: 12.5 MG, 1X/DAY, TABLET
     Route: 048
  6. TORASEMID [Suspect]
     Active Substance: TORSEMIDE
     Dosage: 10 MG, 1X/DAY
     Route: 048
  7. INSULIN DETEMIR [Concomitant]
     Active Substance: INSULIN DETEMIR
     Dosage: 1 IU, 0?0?0?26, PRE?FILLED PEN
     Route: 058
  8. INSULIN GLULISINE [Concomitant]
     Active Substance: INSULIN GLULISINE
     Dosage: 1 IU, 13?15?12?0, PRE?FILLED PEN
     Route: 058
  9. EPLERENONE. [Suspect]
     Active Substance: EPLERENONE
     Dosage: 25 MG, 1X/DAY
     Route: 048

REACTIONS (7)
  - Decreased appetite [Unknown]
  - Musculoskeletal pain [Unknown]
  - Ascites [Unknown]
  - Diarrhoea [Unknown]
  - Inguinal hernia [Unknown]
  - Waist circumference increased [Unknown]
  - Cough [Unknown]
